FAERS Safety Report 5034883-1 (Version None)
Quarter: 2006Q2

REPORT INFORMATION
  Report Type: 
  Country: None (occurrence: None)
  Receive Date: 20060623
  Receipt Date: 20060623
  Transmission Date: 20061013
  Serious: No
  Sender: FDA-Public Use
  Company Number: None

PATIENT
  Age: 74 Year
  Sex: Male
  Weight: 88.4514 kg

DRUGS (1)
  1. LEVAQUIN [Suspect]
     Indication: STAPHYLOCOCCAL INFECTION
     Dosage: ONE TABLET DAILYPO
     Route: 048
     Dates: start: 20060419, end: 20060502

REACTIONS (2)
  - TENDON DISORDER [None]
  - TENDON RUPTURE [None]
